FAERS Safety Report 6860820-0 (Version None)
Quarter: 2010Q3

REPORT INFORMATION
  Report Type: 
  Country: None (occurrence: None)
  Receive Date: 20100720
  Receipt Date: 20100713
  Transmission Date: 20110219
  Serious: Yes (Disabling, Other)
  Sender: FDA-Public Use
  Company Number: US-MERCK-1005USA01061

PATIENT
  Age: 71 Year
  Sex: Female

DRUGS (12)
  1. FOSAMAX [Suspect]
     Indication: OSTEOPENIA
     Route: 048
     Dates: start: 19970101, end: 20070101
  2. FOSAMAX [Suspect]
     Indication: OSTEOPOROSIS
     Route: 048
     Dates: start: 19970101, end: 20070101
  3. FOSAMAX PLUS D [Suspect]
     Indication: OSTEOPENIA
     Route: 048
     Dates: start: 19970101, end: 20070101
  4. FOSAMAX PLUS D [Suspect]
     Indication: OSTEOPOROSIS
     Route: 048
     Dates: start: 19970101, end: 20070101
  5. LIPITOR [Concomitant]
     Route: 065
     Dates: start: 19960101
  6. CLARITIN [Concomitant]
     Route: 065
     Dates: start: 19990101
  7. NORVASC [Concomitant]
     Route: 065
     Dates: start: 19960101, end: 20080101
  8. PLENDIL [Concomitant]
     Route: 065
     Dates: start: 19960101, end: 20080101
  9. ALBUTEROL [Concomitant]
     Route: 065
     Dates: start: 19890101
  10. SEREVENT [Concomitant]
     Route: 065
     Dates: start: 19890101
  11. AZMACORT [Concomitant]
     Route: 065
     Dates: start: 19890101
  12. ACTONEL [Concomitant]
     Route: 065
     Dates: start: 20000101, end: 20010101

REACTIONS (13)
  - ABDOMINAL PAIN [None]
  - BACTERIAL INFECTION [None]
  - BURSITIS [None]
  - CYSTITIS INTERSTITIAL [None]
  - DEPRESSION [None]
  - ENURESIS [None]
  - FEMUR FRACTURE [None]
  - FRACTURE DELAYED UNION [None]
  - MUSCULOSKELETAL DISCOMFORT [None]
  - PATHOLOGICAL FRACTURE [None]
  - SLEEP DISORDER [None]
  - STRESS FRACTURE [None]
  - URINARY TRACT INFECTION [None]
